FAERS Safety Report 8821496 (Version 1)
Quarter: 2012Q4

REPORT INFORMATION
  Report Type: 
  Country: US (occurrence: US)
  Receive Date: 20121002
  Receipt Date: 20121002
  Transmission Date: 20130627
  Serious: Yes (Other)
  Sender: FDA-Public Use
  Company Number: US-ELI_LILLY_AND_COMPANY-US201209005872

PATIENT
  Sex: Female

DRUGS (4)
  1. CYMBALTA [Suspect]
     Indication: DEPRESSION
     Dosage: 30 mg, qd
     Dates: start: 20120819
  2. CYMBALTA [Suspect]
     Dosage: 60 mg, qd
  3. CYMBALTA [Suspect]
     Dosage: 120 mg, qd
  4. BENZODIAZEPINE RELATED DRUGS [Concomitant]
     Dosage: UNK

REACTIONS (2)
  - Stevens-Johnson syndrome [Unknown]
  - Skin exfoliation [Unknown]
